FAERS Safety Report 9053489 (Version 2)
Quarter: 2013Q1

REPORT INFORMATION
  Report Type: Report from Study
  Country: CA (occurrence: CA)
  Receive Date: 20130208
  Receipt Date: 20130214
  Transmission Date: 20140127
  Serious: Yes (Hospitalization)
  Sender: FDA-Public Use
  Company Number: CA-JNJFOC-20130116490

PATIENT
  Age: 34 None
  Sex: Female
  Weight: 73.5 kg

DRUGS (6)
  1. REMICADE [Suspect]
     Indication: CROHN^S DISEASE
     Route: 042
  2. REMICADE [Suspect]
     Indication: CROHN^S DISEASE
     Route: 042
     Dates: start: 201212
  3. REMICADE [Suspect]
     Indication: CROHN^S DISEASE
     Dosage: STARTED 8-10 YEARS BACK (ALSO REPORTED AS 9 YEARS)
     Route: 042
     Dates: start: 2005
  4. REMICADE [Suspect]
     Indication: CROHN^S DISEASE
     Route: 042
     Dates: start: 2012
  5. UNKNOWN MEDICATION [Suspect]
     Indication: PRODUCT USED FOR UNKNOWN INDICATION
     Route: 065
  6. ACETAMINOPHEN [Concomitant]
     Indication: PREMEDICATION
     Route: 048

REACTIONS (8)
  - Gastrointestinal tract irritation [Unknown]
  - Exposure during pregnancy [Recovered/Resolved]
  - Amniotic fluid volume decreased [Unknown]
  - Premature labour [Recovered/Resolved]
  - Frequent bowel movements [Recovering/Resolving]
  - Abdominal pain upper [Recovering/Resolving]
  - Haemorrhage [Recovering/Resolving]
  - Uterine infection [Unknown]
